FAERS Safety Report 8388016-4 (Version None)
Quarter: 2012Q2

REPORT INFORMATION
  Report Type: 
  Country: None (occurrence: None)
  Receive Date: 20120525
  Receipt Date: 20120510
  Transmission Date: 20120825
  Serious: Yes (Other)
  Sender: FDA-Public Use
  Company Number: US-ENDO PHARMACEUTICALS INC.-OPER20120618

PATIENT
  Sex: Female

DRUGS (3)
  1. OPANA ER [Suspect]
     Indication: NECK PAIN
     Route: 048
     Dates: end: 20120401
  2. OPANA ER [Suspect]
     Indication: ARTHRITIS
  3. OPANA ER [Suspect]
     Indication: BACK PAIN

REACTIONS (1)
  - INTENTIONAL DRUG MISUSE [None]
